FAERS Safety Report 8535554-7 (Version None)
Quarter: 2012Q3

REPORT INFORMATION
  Report Type: 
  Country: None (occurrence: None)
  Receive Date: 20120717
  Receipt Date: 20120717
  Transmission Date: 20120928
  Serious: Yes (Hospitalization)
  Sender: FDA-Public Use
  Company Number: None

PATIENT
  Sex: Male
  Weight: 10.2 kg

DRUGS (4)
  1. CYCLOPHOSPHAMIDE [Suspect]
     Dosage: 1836 MG
  2. VINCRISTINE SULFATE [Suspect]
     Dosage: 1 MG
  3. CISPLATIN [Suspect]
     Dosage: 35 MG
  4. ETOPOSIDE [Suspect]
     Dosage: 75 MG

REACTIONS (7)
  - VOMITING [None]
  - JEJUNITIS [None]
  - RESPIRATORY DISTRESS [None]
  - ABDOMINAL DISTENSION [None]
  - GASTROINTESTINAL CANDIDIASIS [None]
  - NECROSIS ISCHAEMIC [None]
  - GASTROINTESTINAL NECROSIS [None]
